FAERS Safety Report 10016720 (Version 2)
Quarter: 2014Q1

REPORT INFORMATION
  Report Type: Spontaneous
  Country: JP (occurrence: JP)
  Receive Date: 20140318
  Receipt Date: 20140328
  Transmission Date: 20141002
  Serious: Yes (Hospitalization, Other)
  Sender: FDA-Public Use
  Company Number: JP-PAR PHARMACEUTICAL, INC-2014SCPR008970

PATIENT
  Sex: 0

DRUGS (9)
  1. DIAZEPAM [Suspect]
     Indication: PSYCHOMOTOR HYPERACTIVITY
     Dosage: UNK, UNKNOWN
     Route: 065
  2. DIAZEPAM [Suspect]
     Indication: SEDATION
  3. DIAZEPAM [Suspect]
     Indication: PAIN
  4. FLUNITRAZEPAM [Suspect]
     Indication: PSYCHOMOTOR HYPERACTIVITY
     Dosage: UNK, UNKNOWN
     Route: 065
  5. FLUNITRAZEPAM [Suspect]
     Indication: SEDATION
  6. FLUNITRAZEPAM [Suspect]
     Indication: PAIN
  7. BUPRENORPHINE [Suspect]
     Indication: PSYCHOMOTOR HYPERACTIVITY
     Dosage: UNK, UNKNOWN
     Route: 065
  8. BUPRENORPHINE [Suspect]
     Indication: SEDATION
  9. BUPRENORPHINE [Suspect]
     Indication: PAIN

REACTIONS (1)
  - Neuroleptic malignant syndrome [Recovered/Resolved]
